FAERS Safety Report 10664485 (Version 2)
Quarter: 2015Q1

REPORT INFORMATION
  Report Type: Report from Study
  Country: JP (occurrence: JP)
  Receive Date: 20141219
  Receipt Date: 20150310
  Transmission Date: 20150720
  Serious: Yes (Hospitalization, Other)
  Sender: FDA-Public Use
  Company Number: JP-JNJFOC-20141206077

PATIENT
  Age: 79 Year
  Sex: Male
  Weight: 41 kg

DRUGS (10)
  1. NATRIX [Concomitant]
     Active Substance: INDAPAMIDE
     Route: 048
  2. CALBLOCK [Concomitant]
     Active Substance: AZELNIDIPINE
     Indication: HYPERTENSION
     Route: 048
  3. CARDENALIN [Concomitant]
     Active Substance: DOXAZOSIN MESYLATE
     Route: 048
  4. EPLERENONE. [Concomitant]
     Active Substance: EPLERENONE
     Indication: HYPERTENSION
     Route: 048
  5. PEGINTRON [Suspect]
     Active Substance: PEGINTERFERON ALFA-2B
     Indication: CHRONIC HEPATITIS C
     Route: 058
     Dates: start: 20140904, end: 20140904
  6. PARIET [Concomitant]
     Active Substance: RABEPRAZOLE SODIUM
     Indication: GASTROOESOPHAGEAL REFLUX DISEASE
     Route: 048
  7. RIBAVIRIN. [Suspect]
     Active Substance: RIBAVIRIN
     Indication: CHRONIC HEPATITIS C
     Route: 048
     Dates: start: 20140904, end: 20140908
  8. OLMETEC [Concomitant]
     Active Substance: OLMESARTAN MEDOXOMIL
     Indication: HYPERTENSION
     Route: 048
  9. METHYCOBAL [Concomitant]
     Active Substance: METHYLCOBALAMIN
     Indication: HAND-ARM VIBRATION SYNDROME
     Route: 048
  10. SOVRIAD [Suspect]
     Active Substance: SIMEPREVIR
     Indication: CHRONIC HEPATITIS C
     Route: 048
     Dates: start: 20140904, end: 20140910

REACTIONS (3)
  - Inappropriate antidiuretic hormone secretion [Recovering/Resolving]
  - Hyperbilirubinaemia [Recovered/Resolved]
  - Platelet count decreased [Recovered/Resolved]

NARRATIVE: CASE EVENT DATE: 20140908
